FAERS Safety Report 13354114 (Version 1)
Quarter: 2017Q1

REPORT INFORMATION
  Report Type: Spontaneous
  Country: DE (occurrence: DE)
  Receive Date: 20170321
  Receipt Date: 20170321
  Transmission Date: 20170429
  Serious: Yes (Other)
  Sender: FDA-Public Use
  Company Number: DE-AMGEN-DEUSP2017039222

PATIENT
  Age: 42 Year
  Sex: Female

DRUGS (2)
  1. ENBREL [Suspect]
     Active Substance: ETANERCEPT
     Indication: PSORIATIC ARTHROPATHY
     Dosage: 50 MG, 1X/WEEK
     Route: 065
     Dates: start: 20150911, end: 201611
  2. ENBREL [Suspect]
     Active Substance: ETANERCEPT
     Indication: AXIAL SPONDYLOARTHRITIS
     Dosage: 25 MG, 1X/WEEK
     Route: 065
     Dates: start: 201611

REACTIONS (2)
  - Iritis [Recovered/Resolved]
  - Rheumatic disorder [Recovered/Resolved]

NARRATIVE: CASE EVENT DATE: 201611
